FAERS Safety Report 5711392-5 (Version None)
Quarter: 2008Q2

REPORT INFORMATION
  Report Type: 
  Country: None (occurrence: None)
  Receive Date: 20080421
  Receipt Date: 20080415
  Transmission Date: 20081010
  Serious: Yes (Other)
  Sender: FDA-Public Use
  Company Number: GB-ROCHE-558676

PATIENT
  Age: 27 Year
  Sex: Female
  Weight: 81 kg

DRUGS (6)
  1. XENICAL [Suspect]
     Indication: OBESITY
     Route: 048
     Dates: start: 20080131, end: 20080401
  2. CHLOROQUINE PHOSPHATE [Concomitant]
     Indication: MALARIA PROPHYLAXIS
  3. DICLOFENAC [Concomitant]
     Indication: PAIN
     Route: 048
     Dates: start: 20080301, end: 20080302
  4. PROGUANIL [Concomitant]
     Indication: MALARIA PROPHYLAXIS
  5. TRIPHASIL-21 [Concomitant]
     Route: 048
  6. TRIPHASIL-21 [Concomitant]
     Route: 048

REACTIONS (1)
  - HYPERTENSION [None]
